FAERS Safety Report 4577822-X (Version None)
Quarter: 2005Q1

REPORT INFORMATION
  Report Type: 
  Country: None (occurrence: None)
  Receive Date: 20050209
  Receipt Date: 20050124
  Transmission Date: 20050727
  Serious: Yes (Hospitalization)
  Sender: FDA-Public Use
  Company Number: B0071768A

PATIENT
  Age: 66 Year
  Sex: Male

DRUGS (6)
  1. IMITREX [Suspect]
     Indication: MIGRAINE
     Dosage: 100 MG AS REQUIRED ORAL
     Route: 048
     Dates: start: 19990101, end: 19990706
  2. IMITREX [Suspect]
     Indication: MIGRAINE
     Dosage: SUBCUTANEOUS
     Route: 058
     Dates: start: 19920101, end: 19990101
  3. ATENOLOL [Concomitant]
  4. ENALAPRIL [Concomitant]
  5. SIMVASTATIN [Concomitant]
  6. ASPIRIN [Concomitant]

REACTIONS (3)
  - BLOOD PRESSURE SYSTOLIC INCREASED [None]
  - CORONARY ARTERY STENOSIS [None]
  - MYOCARDIAL INFARCTION [None]
